FAERS Safety Report 20379127 (Version 2)
Quarter: 2022Q1

REPORT INFORMATION
  Report Type: Spontaneous
  Country: NO (occurrence: NO)
  Receive Date: 20220126
  Receipt Date: 20220127
  Transmission Date: 20220423
  Serious: Yes (Death)
  Sender: FDA-Public Use
  Company Number: NO-CELGENE-NOR-20220106437

PATIENT

DRUGS (3)
  1. POMALYST [Suspect]
     Active Substance: POMALIDOMIDE
     Indication: Plasma cell myeloma
     Dosage: 4 MILLIGRAM
     Route: 048
  2. DEXAMETHASONE [Suspect]
     Active Substance: DEXAMETHASONE
     Indication: Plasma cell myeloma
     Dosage: 40 MILLIGRAM
     Route: 048
  3. MELPHALAN FLUFENAMIDE HYDROCHLORIDE [Suspect]
     Active Substance: MELPHALAN FLUFENAMIDE HYDROCHLORIDE
     Indication: Plasma cell myeloma
     Dosage: 40 MILLIGRAM
     Route: 041

REACTIONS (1)
  - COVID-19 pneumonia [Fatal]
